FAERS Safety Report 22526317 (Version 1)
Quarter: 2023Q2

REPORT INFORMATION
  Report Type: Spontaneous
  Country: None (occurrence: CA)
  Receive Date: 20230606
  Receipt Date: 20230606
  Transmission Date: 20230722
  Serious: Yes (Other)
  Sender: FDA-Public Use
  Company Number: CA-B.Braun Medical Inc.-2142384

PATIENT
  Sex: Male

DRUGS (2)
  1. SODIUM CHLORIDE [Suspect]
     Active Substance: SODIUM CHLORIDE
     Indication: Loss of consciousness
     Route: 042
  2. REMICADE [Suspect]
     Active Substance: INFLIXIMAB

REACTIONS (4)
  - Abdominal discomfort [Unknown]
  - Infusion related reaction [Unknown]
  - Loss of consciousness [Unknown]
  - Urticaria [Unknown]
